FAERS Safety Report 5680627-X (Version None)
Quarter: 2008Q1

REPORT INFORMATION
  Report Type: 
  Country: None (occurrence: None)
  Receive Date: 20080326
  Receipt Date: 20080115
  Transmission Date: 20080703
  Serious: No
  Sender: FDA-Public Use
  Company Number: A0693612A

PATIENT
  Age: 3 Year
  Sex: Male
  Weight: 12.7 kg

DRUGS (3)
  1. FLOVENT [Suspect]
     Indication: ASTHMA
     Dosage: 1PUFF TWICE PER DAY
     Route: 055
     Dates: start: 20070815, end: 20071108
  2. ALBUTEROL [Concomitant]
  3. VITAMINS [Concomitant]

REACTIONS (4)
  - AGITATION [None]
  - DRUG ADMINISTRATION ERROR [None]
  - DYSPHONIA [None]
  - IRRITABILITY [None]
